FAERS Safety Report 20376428 (Version 3)
Quarter: 2022Q1

REPORT INFORMATION
  Report Type: Other
  Country: US (occurrence: None)
  Receive Date: 20220125
  Receipt Date: 20220204
  Transmission Date: 20220423
  Serious: No
  Sender: FDA-Public Use
  Company Number: US-ROCHE-3009847

PATIENT
  Sex: Female

DRUGS (1)
  1. OCREVUS [Suspect]
     Active Substance: OCRELIZUMAB
     Indication: Multiple sclerosis
     Dosage: LAST DATE OF TREATMENT: 30/JUL/2021, NEXT DATE OF TREATMENT: 21/JAN/2022
     Route: 042

REACTIONS (1)
  - COVID-19 [Recovering/Resolving]
